FAERS Safety Report 7957754-7 (Version None)
Quarter: 2011Q4

REPORT INFORMATION
  Report Type: 
  Country: None (occurrence: None)
  Receive Date: 20111205
  Receipt Date: 20111205
  Transmission Date: 20120403
  Serious: Yes (Hospitalization)
  Sender: FDA-Public Use
  Company Number: PHHO2010AU12703

PATIENT
  Sex: Female
  Weight: 42 kg

DRUGS (1)
  1. AFINITOR [Suspect]
     Indication: GASTRIC CANCER
     Dosage: 10 MG, QD
     Dates: start: 20100811, end: 20100818

REACTIONS (6)
  - MUCOSAL INFLAMMATION [None]
  - ORAL HERPES [None]
  - HYPOTENSION [None]
  - HYPOPHAGIA [None]
  - HERPES SIMPLEX [None]
  - ORAL CANDIDIASIS [None]
